FAERS Safety Report 5058000-7 (Version None)
Quarter: 2006Q3

REPORT INFORMATION
  Report Type: 
  Country: None (occurrence: None)
  Receive Date: 20060721
  Receipt Date: 20060508
  Transmission Date: 20061208
  Serious: No
  Sender: FDA-Public Use
  Company Number: US-GLAXOSMITHKLINE-A0604722A

PATIENT
  Sex: Male

DRUGS (13)
  1. AVANDIA [Suspect]
     Indication: DRUG USE FOR UNKNOWN INDICATION
     Dosage: 4MG PER DAY
     Route: 048
     Dates: start: 20060503, end: 20060506
  2. HYDROCORTISONE TAB [Concomitant]
  3. FLOVENT [Concomitant]
  4. INTAL [Concomitant]
  5. MAXAIR [Concomitant]
  6. LEVOXYL [Concomitant]
  7. FLONASE [Concomitant]
  8. IPRATROPIUM BROMIDE [Concomitant]
  9. NASALCROM [Concomitant]
  10. ASTELIN [Concomitant]
  11. ZANTAC [Concomitant]
  12. HYOSCYAMINE [Concomitant]
  13. ANDROGEL [Concomitant]

REACTIONS (1)
  - NAUSEA [None]
